FAERS Safety Report 6423093-9 (Version None)
Quarter: 2009Q4

REPORT INFORMATION
  Report Type: 
  Country: None (occurrence: None)
  Receive Date: 20091102
  Receipt Date: 20091027
  Transmission Date: 20100525
  Serious: Yes (Other)
  Sender: FDA-Public Use
  Company Number: US-B.I. PHARMACEUTICALS,INC./RIDGEFIELD-2009-BP-11843BP

PATIENT
  Age: 47 Year
  Sex: Female
  Weight: 56.7 kg

DRUGS (1)
  1. FLOMAX [Suspect]
     Dosage: 0.4 MG
     Dates: start: 20090903

REACTIONS (6)
  - DRUG ADMINISTRATION ERROR [None]
  - FALL [None]
  - HEAD INJURY [None]
  - HYPERSENSITIVITY [None]
  - LOSS OF CONSCIOUSNESS [None]
  - SYNCOPE [None]
